FAERS Safety Report 5259075-2 (Version None)
Quarter: 2007Q1

REPORT INFORMATION
  Report Type: 
  Country: None (occurrence: None)
  Receive Date: 20070305
  Receipt Date: 20070222
  Transmission Date: 20070707
  Serious: Yes (Other)
  Sender: FDA-Public Use
  Company Number: 2007SP003489

PATIENT
  Age: 59 Year
  Sex: Male

DRUGS (2)
  1. PEG-INTRON (PREINTERFERON ALFA-2B) [Suspect]
     Indication: HEPATITIS C
     Dosage: SC
     Route: 058
     Dates: start: 20061230
  2. RIBAVIRIN [Suspect]
     Indication: HEPATITIS C
     Dosage: PO
     Route: 048
     Dates: start: 20061230

REACTIONS (4)
  - ABDOMINAL PAIN UPPER [None]
  - DIZZINESS [None]
  - DYSPNOEA [None]
  - HAEMOPTYSIS [None]
